FAERS Safety Report 24552838 (Version 3)
Quarter: 2025Q2

REPORT INFORMATION
  Report Type: Spontaneous
  Country: US (occurrence: US)
  Receive Date: 20241027
  Receipt Date: 20250417
  Transmission Date: 20250716
  Serious: No
  Sender: BRISTOL MYERS SQUIBB
  Company Number: US-BRISTOL-MYERS SQUIBB COMPANY-2024-165122

PATIENT
  Age: 52 Year
  Sex: Female
  Weight: 95.71 kg

DRUGS (2)
  1. ORENCIA [Suspect]
     Active Substance: ABATACEPT
     Indication: Rheumatoid arthritis
     Route: 058
     Dates: start: 202209
  2. ORENCIA [Suspect]
     Active Substance: ABATACEPT
     Indication: Systemic lupus erythematosus
     Route: 058

REACTIONS (9)
  - Laryngeal disorder [Unknown]
  - Gastrointestinal disorder [Unknown]
  - Pain in extremity [Unknown]
  - Musculoskeletal pain [Unknown]
  - Weight increased [Unknown]
  - Back pain [Unknown]
  - Oropharyngeal pain [Unknown]
  - Abdominal pain [Unknown]
  - Facial pain [Unknown]

NARRATIVE: CASE EVENT DATE: 20240730
